FAERS Safety Report 23640875 (Version 1)
Quarter: 2024Q1

REPORT INFORMATION
  Report Type: Spontaneous
  Country: US (occurrence: US)
  Receive Date: 20240318
  Receipt Date: 20240318
  Transmission Date: 20240410
  Serious: Yes (Other)
  Sender: FDA-Public Use
  Company Number: US-AUROBINDO-AUR-APL-2023-032705

PATIENT
  Age: 40 Year
  Sex: Male
  Weight: 107.48 kg

DRUGS (3)
  1. LAMOTRIGINE [Suspect]
     Active Substance: LAMOTRIGINE
     Indication: Sleep disorder
     Dosage: UNK UNK, ONCE A DAY (IN THIS FIRST WEEK)
     Route: 065
     Dates: start: 20230223
  2. AMLODIPINE BESYLATE [Concomitant]
     Active Substance: AMLODIPINE BESYLATE
     Indication: Hypertension
     Dosage: UNK
     Route: 065
  3. VIREAD [Concomitant]
     Active Substance: TENOFOVIR DISOPROXIL FUMARATE
     Indication: HIV infection
     Dosage: UNK
     Route: 065

REACTIONS (12)
  - Suicidal ideation [Unknown]
  - Rash [Unknown]
  - Skin burning sensation [Unknown]
  - Somnolence [Unknown]
  - Palpitations [Unknown]
  - Vision blurred [Unknown]
  - Skin injury [Unknown]
  - Emotional disorder [Unknown]
  - Contraindicated product administered [Unknown]
  - Impaired ability to use machinery [Unknown]
  - Personality disorder [Unknown]
  - Product prescribing error [Unknown]

NARRATIVE: CASE EVENT DATE: 20230223
